FAERS Safety Report 10070738 (Version 1)
Quarter: 2014Q2

REPORT INFORMATION
  Report Type: Spontaneous
  Country: CO (occurrence: CO)
  Receive Date: 20140410
  Receipt Date: 20140410
  Transmission Date: 20141212
  Serious: Yes (Other)
  Sender: FDA-Public Use
  Company Number: CO-PFIZER INC-2014098317

PATIENT
  Age: 54 Year
  Sex: Male

DRUGS (1)
  1. CARDURAN [Suspect]
     Indication: PROSTATIC DISORDER
     Dosage: 4 MG, 1X/DAY
     Route: 048
     Dates: start: 2012

REACTIONS (1)
  - Prostatic disorder [Recovered/Resolved]
